FAERS Safety Report 13301842 (Version 1)
Quarter: 2017Q1

REPORT INFORMATION
  Report Type: Spontaneous
  Country: CA (occurrence: CA)
  Receive Date: 20170307
  Receipt Date: 20170307
  Transmission Date: 20170428
  Serious: Yes (Hospitalization, Other)
  Sender: FDA-Public Use
  Company Number: CA-ELI_LILLY_AND_COMPANY-CA201703000828

PATIENT
  Age: 58 Year
  Sex: Female

DRUGS (2)
  1. CISPLATIN. [Suspect]
     Active Substance: CISPLATIN
     Indication: CHOLANGIOCARCINOMA
     Dosage: 20 MG/M2, CYCLICAL
     Route: 042
  2. GEMCITABINE HYDROCHLORIDE. [Suspect]
     Active Substance: GEMCITABINE HYDROCHLORIDE
     Indication: CHOLANGIOCARCINOMA
     Dosage: 1000 MG/M2, CYCLICAL
     Route: 042
     Dates: start: 2014

REACTIONS (9)
  - Coma scale abnormal [Unknown]
  - Posterior reversible encephalopathy syndrome [Unknown]
  - Visual impairment [Unknown]
  - Balance disorder [Unknown]
  - Hypokalaemia [Unknown]
  - Blood magnesium decreased [Unknown]
  - Agitation [Unknown]
  - Somnolence [Unknown]
  - Confusional state [Unknown]
